FAERS Safety Report 10963219 (Version 1)
Quarter: 2015Q1

REPORT INFORMATION
  Report Type: Spontaneous
  Country: BR (occurrence: BR)
  Receive Date: 20150327
  Receipt Date: 20150327
  Transmission Date: 20150721
  Serious: Yes (Hospitalization)
  Sender: FDA-Public Use
  Company Number: BR-ASTRAZENECA-2014SE55357

PATIENT
  Age: 923 Month
  Sex: Female
  Weight: 68 kg

DRUGS (16)
  1. FOLIN [Concomitant]
     Route: 048
  2. SPIRONOLACTONE. [Concomitant]
     Active Substance: SPIRONOLACTONE
     Indication: HYPERTENSION
     Route: 048
  3. UNKNOWN CONCOMITANT DRUGS [Concomitant]
     Indication: HYPERTENSION
  4. GLIFAGE XR [Suspect]
     Active Substance: METFORMIN HYDROCHLORIDE
     Dosage: NON AZ PRODUCT, 1 TABLET/AFTER DINNER
     Dates: start: 201403
  5. SELOZOK [Concomitant]
     Active Substance: METOPROLOL SUCCINATE
     Dates: start: 20150318
  6. FUROSEMIDE. [Concomitant]
     Active Substance: FUROSEMIDE
     Indication: HYPERTENSION
     Route: 048
  7. COMPLEX B [Concomitant]
     Active Substance: CALCIUM PANTOTHENATE\CYANOCOBALAMIN\NIACINAMIDE\PYRIDOXINE HYDROCHLORIDE\RIBOFLAVIN\THIAMINE MONONITRATE
     Indication: VITAMIN SUPPLEMENTATION
     Route: 048
  8. ALOPURINOL [Concomitant]
     Active Substance: ALLOPURINOL
     Route: 048
  9. ASPIRINA PREVENT [Concomitant]
     Active Substance: ASPIRIN
  10. DIOSMIN [Concomitant]
     Active Substance: DIOSMIN
     Dates: start: 201403
  11. FORXIGA [Suspect]
     Active Substance: DAPAGLIFLOZIN
     Indication: TYPE 2 DIABETES MELLITUS
     Route: 048
     Dates: start: 201403, end: 20140709
  12. FORXIGA [Suspect]
     Active Substance: DAPAGLIFLOZIN
     Indication: TYPE 2 DIABETES MELLITUS
     Route: 048
     Dates: start: 20150309
  13. PAMELOR [Concomitant]
     Active Substance: NORTRIPTYLINE HYDROCHLORIDE
     Indication: FIBROMYALGIA
     Route: 048
     Dates: end: 20150318
  14. PROCIMAX [Concomitant]
     Active Substance: CITALOPRAM HYDROBROMIDE
     Dates: start: 20150318
  15. FORXIGA [Suspect]
     Active Substance: DAPAGLIFLOZIN
     Indication: TYPE 2 DIABETES MELLITUS
     Route: 048
     Dates: start: 201407, end: 20150303
  16. DIOVAN [Concomitant]
     Active Substance: VALSARTAN
     Indication: HYPERTENSION
     Route: 048

REACTIONS (4)
  - Hypoglycaemia [Unknown]
  - Arrhythmia [Recovered/Resolved]
  - Intentional product misuse [Recovered/Resolved]
  - Hypotension [Recovered/Resolved]

NARRATIVE: CASE EVENT DATE: 201407
